FAERS Safety Report 17410491 (Version 3)
Quarter: 2020Q4

REPORT INFORMATION
  Report Type: Spontaneous
  Country: AR (occurrence: AR)
  Receive Date: 20200212
  Receipt Date: 20201230
  Transmission Date: 20210113
  Serious: Yes (Death, Other)
  Sender: FDA-Public Use
  Company Number: AR-009507513-2002ARG003991

PATIENT
  Age: 67 Year
  Sex: Male
  Weight: 72 kg

DRUGS (2)
  1. CISPLATIN. [Concomitant]
     Active Substance: CISPLATIN
     Indication: LARYNGEAL CANCER
     Dosage: 100 MILLIGRAM/SQ. METER, QW
  2. KEYTRUDA [Suspect]
     Active Substance: PEMBROLIZUMAB
     Indication: LARYNGEAL CANCER
     Dosage: 190 MG (ALSO REPORTED AS 200 (UNITS NOT REPORTED)), EVERY 3 WEEKS
     Dates: start: 20191113, end: 20200503

REACTIONS (14)
  - Aortic arteriosclerosis [Unknown]
  - Granulomatous liver disease [Unknown]
  - Tongue movement disturbance [Unknown]
  - Skin tightness [Unknown]
  - Scar [Unknown]
  - Skin fibrosis [Unknown]
  - Spinal osteoarthritis [Unknown]
  - Granulomatous lymphadenitis [Unknown]
  - Lymph node abscess [Unknown]
  - Pain [Unknown]
  - Lung cyst [Unknown]
  - Tumour haemorrhage [Fatal]
  - Pleural thickening [Unknown]
  - Lymphadenopathy mediastinal [Unknown]

NARRATIVE: CASE EVENT DATE: 20200121
